FAERS Safety Report 6442493-4 (Version None)
Quarter: 2009Q4

REPORT INFORMATION
  Report Type: 
  Country: None (occurrence: None)
  Receive Date: 20091112
  Receipt Date: 20091029
  Transmission Date: 20100525
  Serious: Yes (Hospitalization)
  Sender: FDA-Public Use
  Company Number: 230199J09BRA

PATIENT
  Age: 65 Year
  Sex: Female

DRUGS (15)
  1. REBIF [Suspect]
     Indication: RELAPSING-REMITTING MULTIPLE SCLEROSIS
     Dosage: 44 MCG, 3 IN 1 WEEKS
     Dates: start: 20080101, end: 20090901
  2. REBIF [Suspect]
     Indication: RELAPSING-REMITTING MULTIPLE SCLEROSIS
     Dosage: 44 MCG, 3 IN 1 WEEKS
     Dates: start: 20090901, end: 20091020
  3. RIVOTRIL (CLONAZEPAM) [Concomitant]
  4. TRYPTANOL (AMITRIPTYLINE) [Concomitant]
  5. RITMONORM (PROPAFENONE) (PROPAFENONE) [Concomitant]
  6. ZELMAC (TEGASEROD) [Concomitant]
  7. ASCORBIC ACID [Concomitant]
  8. VITAMIN E [Concomitant]
  9. VITAMIN D [Concomitant]
  10. CALCIUM (CALCIUM) [Concomitant]
  11. MAGNESIUM (MAGNESIUM) [Concomitant]
  12. ZINC (ZINC) [Concomitant]
  13. MUVINOR (POLYCARBOPHIL CALCIUM) [Concomitant]
  14. LINSEED OIL (LINUM USITATISSIMUM SEED OIL) [Concomitant]
  15. IBUPROFEN [Concomitant]

REACTIONS (10)
  - BALANCE DISORDER [None]
  - ERYTHEMA [None]
  - FALL [None]
  - IMMUNOSUPPRESSION [None]
  - IMPAIRED HEALING [None]
  - POST PROCEDURAL INFECTION [None]
  - POST PROCEDURAL SWELLING [None]
  - POSTOPERATIVE WOUND COMPLICATION [None]
  - SKIN DISCOLOURATION [None]
  - WRIST FRACTURE [None]
